FAERS Safety Report 7457522-9 (Version None)
Quarter: 2011Q2

REPORT INFORMATION
  Report Type: 
  Country: None (occurrence: None)
  Receive Date: 20110504
  Receipt Date: 20110428
  Transmission Date: 20111010
  Serious: Yes (Other)
  Sender: FDA-Public Use
  Company Number: FR-BRISTOL-MYERS SQUIBB COMPANY-15709728

PATIENT
  Age: 79 Year
  Sex: Female

DRUGS (7)
  1. PRAZOSIN HCL [Suspect]
  2. LODOZ [Suspect]
  3. TEMERIT [Suspect]
  4. ALLOPURINOL [Suspect]
     Dosage: UNK-ONG
  5. COAPROVEL TABS 300MG/ 25MG [Suspect]
     Indication: HYPERTENSION
     Dosage: FILM-COATED TABLET  1 DF=300 MG/25 MG  AUTHORIZATION NO:20-758
     Route: 048
  6. MEDIATOR [Suspect]
     Indication: BLOOD GLUCOSE INCREASED
     Dosage: COATED TABLET  TWENTY-TWO CONSECUTIVE MONTHS
     Route: 048
     Dates: start: 20080117, end: 20091001
  7. LOXEN LP [Suspect]
     Indication: HYPERTENSION
     Dosage: SR CAPSULE
     Route: 048

REACTIONS (1)
  - AORTIC VALVE DISEASE [None]
